FAERS Safety Report 9694289 (Version 1)
Quarter: 2013Q4

REPORT INFORMATION
  Report Type: Spontaneous
  Country: US (occurrence: US)
  Receive Date: 20131118
  Receipt Date: 20131118
  Transmission Date: 20140711
  Serious: No
  Sender: FDA-Public Use
  Company Number: US-GILEAD-2007-0012795

PATIENT
  Sex: Female

DRUGS (2)
  1. LETAIRIS [Suspect]
  2. VIAGRA [Concomitant]

REACTIONS (2)
  - Headache [Unknown]
  - Nasal congestion [Unknown]
